FAERS Safety Report 9245232 (Version 2)
Quarter: 2013Q2

REPORT INFORMATION
  Report Type: Spontaneous
  Country: JP (occurrence: JP)
  Receive Date: 20130422
  Receipt Date: 20130604
  Transmission Date: 20140414
  Serious: Yes (Death, Life-Threatening, Hospitalization)
  Sender: FDA-Public Use
  Company Number: JP-009507513-1304JPN011959

PATIENT
  Age: 64 Year
  Sex: Male
  Weight: 60 kg

DRUGS (9)
  1. PEGINTRON [Suspect]
     Indication: HEPATIC CIRRHOSIS
     Dosage: 70 MICROGRAM, QW
     Route: 058
     Dates: start: 20121109, end: 20130301
  2. REBETOL [Suspect]
     Indication: HEPATIC CIRRHOSIS
     Dosage: MORNING 200 MG, EVENING 400MG
     Route: 048
     Dates: start: 20121109, end: 20130201
  3. REBETOL [Suspect]
     Dosage: 400 MG, QD
     Route: 048
     Dates: start: 20130202, end: 20130307
  4. URSODIOL [Concomitant]
     Indication: HEPATIC CIRRHOSIS
     Dosage: 200 MG, TID
     Route: 048
     Dates: end: 20130307
  5. ACTOS [Concomitant]
     Indication: DIABETES MELLITUS
     Dosage: 15 MG, QD
     Route: 048
     Dates: end: 20130307
  6. GLIMEPIRIDE [Concomitant]
     Indication: DIABETES MELLITUS
     Dosage: 1 MG, QD
     Route: 048
     Dates: end: 20130307
  7. VOGLIBOSE [Concomitant]
     Indication: DIABETES MELLITUS
     Dosage: 0.2 MG, TID
     Route: 048
     Dates: end: 20130307
  8. APORASNON [Concomitant]
     Indication: OEDEMA DUE TO HEPATIC DISEASE
     Dosage: 25 MG, QD
     Route: 048
     Dates: end: 20130301
  9. FUROSEMIDE [Concomitant]
     Indication: OEDEMA DUE TO HEPATIC DISEASE
     Dosage: 20 MG, QD
     Route: 048
     Dates: start: 20130302, end: 20130307

REACTIONS (3)
  - Renal failure acute [Fatal]
  - Sepsis [Fatal]
  - Anaemia [Not Recovered/Not Resolved]
